FAERS Safety Report 5009757-2 (Version None)
Quarter: 2006Q2

REPORT INFORMATION
  Report Type: 
  Country: None (occurrence: None)
  Receive Date: 20060524
  Receipt Date: 20060425
  Transmission Date: 20061013
  Serious: Yes (Hospitalization)
  Sender: FDA-Public Use
  Company Number: US-ROCHE-446002

PATIENT
  Age: 50 Year
  Sex: Female

DRUGS (2)
  1. PEGASYS [Suspect]
     Dosage: ROUTE REPORTED AS INJ.
     Route: 050
     Dates: start: 20051014, end: 20060101
  2. COPEGUS [Suspect]
     Route: 048
     Dates: start: 20051014, end: 20060101

REACTIONS (6)
  - ABDOMINAL PAIN UPPER [None]
  - ALOPECIA [None]
  - BACK PAIN [None]
  - BLADDER PROLAPSE [None]
  - DIARRHOEA [None]
  - INFECTION [None]
